FAERS Safety Report 11087358 (Version 1)
Quarter: 2015Q2

REPORT INFORMATION
  Report Type: Spontaneous
  Country: IT (occurrence: None)
  Receive Date: 20150430
  Receipt Date: 20150430
  Transmission Date: 20150821
  Serious: Yes (Hospitalization)
  Sender: FDA-Public Use
  Company Number: FK201501916

PATIENT
  Age: 61 Year
  Sex: Male

DRUGS (13)
  1. LEVOFLOXACIN. [Suspect]
     Active Substance: LEVOFLOXACIN
     Indication: PRODUCT USED FOR UNKNOWN INDICATION
     Dosage: 1 IN 1 D
     Route: 041
     Dates: start: 20150330, end: 20150404
  2. KEPPRA [Suspect]
     Active Substance: LEVETIRACETAM
     Indication: PRODUCT USED FOR UNKNOWN INDICATION
     Dosage: 1 IN 1 D
     Route: 041
     Dates: start: 20150402, end: 20150404
  3. DIPRIVAN (PROPOFOL) [Concomitant]
  4. MANNITOLO (MANNITOL) [Concomitant]
  5. ALBUMINA BAXTER (ALBUMIN HUMAN) [Concomitant]
  6. VOLTAREN (DICLOFENAC) [Concomitant]
  7. CEFAMEZIN (CEFAZOLIN SODIUM) [Suspect]
     Active Substance: CEFAZOLIN SODIUM
     Indication: PRODUCT USED FOR UNKNOWN INDICATION
     Dosage: 1 IN 1 D
     Route: 041
     Dates: start: 20150328, end: 20150404
  8. DINTOINA (PHENYTOIN SODIUM) [Suspect]
     Active Substance: PHENYTOIN SODIUM
     Indication: PRODUCT USED FOR UNKNOWN INDICATION
     Dosage: 1 IN 1 D
     Route: 048
     Dates: start: 20150327, end: 20150401
  9. ULTIVA (REMIFENTANIL HYDROCHLORIDE) [Concomitant]
  10. PERFALGAN [Suspect]
     Active Substance: ACETAMINOPHEN
     Indication: PRODUCT USED FOR UNKNOWN INDICATION
     Dosage: 1 IN 1 D
     Route: 041
     Dates: start: 20150329, end: 20150404
  11. BISOPROLOL [Concomitant]
     Active Substance: BISOPROLOL
  12. LASIX [Concomitant]
     Active Substance: FUROSEMIDE
  13. FENTANEST (FENTANYL) [Concomitant]

REACTIONS (1)
  - Acute generalised exanthematous pustulosis [None]

NARRATIVE: CASE EVENT DATE: 20150403
